FAERS Safety Report 5387798-3 (Version None)
Quarter: 2007Q3

REPORT INFORMATION
  Report Type: 
  Country: None (occurrence: None)
  Receive Date: 20070716
  Receipt Date: 20060711
  Transmission Date: 20080115
  Serious: No
  Sender: FDA-Public Use
  Company Number: A0545407A

PATIENT
  Age: 31 Year
  Sex: Female

DRUGS (3)
  1. NICORETTE [Suspect]
  2. NICORETTE [Suspect]
  3. NICODERM CQ [Suspect]

REACTIONS (10)
  - ANGER [None]
  - DISTURBANCE IN ATTENTION [None]
  - DIZZINESS [None]
  - DRUG WITHDRAWAL SYNDROME [None]
  - INTENTIONAL DRUG MISUSE [None]
  - IRRITABILITY [None]
  - MALAISE [None]
  - MEMORY IMPAIRMENT [None]
  - NAUSEA [None]
  - PALPITATIONS [None]
